FAERS Safety Report 4325505-3 (Version None)
Quarter: 2004Q1

REPORT INFORMATION
  Report Type: 
  Country: None (occurrence: None)
  Receive Date: 20040324
  Receipt Date: 20040310
  Transmission Date: 20041129
  Serious: Yes (Hospitalization, Other)
  Sender: FDA-Public Use
  Company Number: 2004017234

PATIENT
  Age: 26 Year
  Sex: Male
  Weight: 108.8633 kg

DRUGS (4)
  1. GEODON [Suspect]
     Indication: ILL-DEFINED DISORDER
  2. CLONAZEPAM [Concomitant]
  3. LORAZEPAM [Concomitant]
  4. DIPHENHYDRAMINE HCL [Concomitant]

REACTIONS (13)
  - ANGER [None]
  - ANXIETY [None]
  - CATATONIA [None]
  - CRYING [None]
  - DELUSION [None]
  - FEAR [None]
  - HALLUCINATIONS, MIXED [None]
  - HYPOKINESIA [None]
  - INCOHERENT [None]
  - MUTISM [None]
  - NEUROLEPTIC MALIGNANT SYNDROME [None]
  - PSYCHOTIC DISORDER [None]
  - STARING [None]
